FAERS Safety Report 6080565-7 (Version None)
Quarter: 2009Q1

REPORT INFORMATION
  Report Type: 
  Country: None (occurrence: None)
  Receive Date: 20090217
  Receipt Date: 20090212
  Transmission Date: 20090719
  Serious: Yes (Death, Hospitalization)
  Sender: FDA-Public Use
  Company Number: B0556517A

PATIENT
  Age: 81 Year
  Sex: Male

DRUGS (11)
  1. ALKERAN [Suspect]
     Indication: MULTIPLE MYELOMA
     Route: 048
     Dates: start: 20000306
  2. ALKERAN [Suspect]
     Route: 065
     Dates: start: 20070201
  3. ALKERAN [Suspect]
     Route: 048
     Dates: start: 20000324, end: 20070625
  4. PREDNISOLONE [Suspect]
     Indication: MULTIPLE MYELOMA
     Route: 065
     Dates: start: 20000306
  5. PREDNISOLONE [Concomitant]
     Dates: start: 20070201
  6. CLEANAL [Concomitant]
     Indication: ASTHMA
     Dosage: 600MG PER DAY
     Route: 048
     Dates: start: 20070213, end: 20070625
  7. MUCOSOLVAN [Concomitant]
     Indication: ASTHMA
     Dosage: 100MG PER DAY
     Route: 048
     Dates: start: 20070213, end: 20070625
  8. THEOLONG [Concomitant]
     Dosage: 200MG PER DAY
     Route: 048
     Dates: start: 20070213, end: 20070625
  9. ACCOLATE [Concomitant]
     Indication: ASTHMA
     Dosage: 40MG PER DAY
     Route: 048
     Dates: start: 20070213, end: 20070625
  10. ZYLORIC [Concomitant]
     Indication: GOUT
     Dosage: 100MG PER DAY
     Route: 048
     Dates: start: 20070213, end: 20070625
  11. FLUTIDE [Concomitant]
     Indication: ASTHMA
     Dosage: 400MCG PER DAY
     Route: 055
     Dates: start: 20070613, end: 20070625

REACTIONS (18)
  - ACUTE MYELOID LEUKAEMIA [None]
  - ANAEMIA [None]
  - ANOREXIA [None]
  - BLOOD LACTATE DEHYDROGENASE INCREASED [None]
  - DEATH [None]
  - DEPRESSED LEVEL OF CONSCIOUSNESS [None]
  - EMPHYSEMA [None]
  - HERPES ZOSTER [None]
  - HYPERGAMMAGLOBULINAEMIA [None]
  - LIVER DISORDER [None]
  - MOUTH HAEMORRHAGE [None]
  - PLATELET COUNT DECREASED [None]
  - PNEUMONIA [None]
  - PRODUCTIVE COUGH [None]
  - PYREXIA [None]
  - RED BLOOD CELL SEDIMENTATION RATE INCREASED [None]
  - RESPIRATORY ARREST [None]
  - WHITE BLOOD CELL COUNT INCREASED [None]
